FAERS Safety Report 16113107 (Version 2)
Quarter: 2019Q2

REPORT INFORMATION
  Report Type: Spontaneous
  Country: US (occurrence: US)
  Receive Date: 20190325
  Receipt Date: 20190529
  Transmission Date: 20190711
  Serious: Yes (Other)
  Sender: FDA-Public Use
  Company Number: US-PFIZER INC-2019121973

PATIENT
  Age: 57 Year
  Sex: Female
  Weight: 81 kg

DRUGS (3)
  1. LYRICA [Suspect]
     Active Substance: PREGABALIN
     Indication: HYPOAESTHESIA
     Dosage: UNK
  2. LYRICA [Suspect]
     Active Substance: PREGABALIN
     Indication: SENSORY LOSS
     Dosage: 50 MG, 3X/DAY
     Dates: start: 20190404
  3. LYRICA [Suspect]
     Active Substance: PREGABALIN
     Indication: NEUROPATHY PERIPHERAL

REACTIONS (6)
  - Neoplasm malignant [Unknown]
  - Hypoaesthesia oral [Unknown]
  - Cerebral palsy [Unknown]
  - Vision blurred [Unknown]
  - Malaise [Unknown]
  - Peripheral swelling [Unknown]
